FAERS Safety Report 6887974-4 (Version None)
Quarter: 2010Q3

REPORT INFORMATION
  Report Type: 
  Country: None (occurrence: None)
  Receive Date: 20100730
  Receipt Date: 20100720
  Transmission Date: 20110219
  Serious: Yes (Death, Hospitalization)
  Sender: FDA-Public Use
  Company Number: A0867102A

PATIENT
  Age: 71 Year
  Sex: Female
  Weight: 118.6 kg

DRUGS (6)
  1. AVANDIA [Suspect]
     Dosage: 2MG AT NIGHT
     Route: 048
  2. DIABETA [Concomitant]
  3. GLUCOPHAGE [Concomitant]
  4. NEURONTIN [Concomitant]
  5. TOPROL-XL [Concomitant]
  6. TRANXENE [Concomitant]

REACTIONS (3)
  - ANGIOPLASTY [None]
  - CARDIO-RESPIRATORY ARREST [None]
  - MYOCARDIAL INFARCTION [None]
